FAERS Safety Report 4679835-6 (Version None)
Quarter: 2005Q2

REPORT INFORMATION
  Report Type: 
  Country: None (occurrence: None)
  Receive Date: 20050602
  Receipt Date: 20041116
  Transmission Date: 20051028
  Serious: No
  Sender: FDA-Public Use
  Company Number: US-GLAXOSMITHKLINE-A0534118A

PATIENT
  Age: 68 Year
  Sex: Male

DRUGS (2)
  1. AUGMENTIN [Suspect]
     Indication: CELLULITIS
     Dosage: 1TAB TWICE PER DAY
     Route: 048
     Dates: start: 20041012, end: 20041026
  2. BENADRYL [Concomitant]

REACTIONS (2)
  - SWELLING FACE [None]
  - URTICARIA [None]
